FAERS Safety Report 12474943 (Version 1)
Quarter: 2016Q2

REPORT INFORMATION
  Report Type: Report from Study
  Country: US (occurrence: US)
  Receive Date: 20160617
  Receipt Date: 20160617
  Transmission Date: 20160815
  Serious: Yes (Other)
  Sender: FDA-Public Use
  Company Number: US-AEGERION PHARMACEUTICALS-AEGR002611

PATIENT
  Age: 49 Year
  Sex: Male

DRUGS (17)
  1. ASPIRIN. [Concomitant]
     Active Substance: ASPIRIN
     Indication: CORONARY ARTERY DISEASE
     Dosage: 81 MG, QD
     Route: 048
     Dates: start: 20010808
  2. JUXTAPID [Suspect]
     Active Substance: LOMITAPIDE MESYLATE
     Indication: TYPE IIA HYPERLIPIDAEMIA
     Dosage: 10 MG, QD
     Route: 048
     Dates: start: 20140522
  3. JUXTAPID [Suspect]
     Active Substance: LOMITAPIDE MESYLATE
     Dosage: 10 MG, QOD
     Route: 048
     Dates: start: 20160304, end: 20160420
  4. LYRICA [Concomitant]
     Active Substance: PREGABALIN
     Indication: COMPLEX REGIONAL PAIN SYNDROME
     Dosage: 150 MG, QD
     Route: 048
     Dates: start: 20130723
  5. PERCOCET [Concomitant]
     Active Substance: ACETAMINOPHEN\OXYCODONE HYDROCHLORIDE
     Indication: COMPLEX REGIONAL PAIN SYNDROME
     Dosage: 7.5/325 MG, PRN
     Route: 048
     Dates: start: 20130722
  6. OXYMORPHONE [Concomitant]
     Active Substance: OXYMORPHONE
     Indication: COMPLEX REGIONAL PAIN SYNDROME
     Dosage: 10 MG, BID
     Route: 048
     Dates: start: 20140415
  7. ZETIA [Concomitant]
     Active Substance: EZETIMIBE
     Indication: HYPERCHOLESTEROLAEMIA
     Dosage: 10 MG, QD
     Route: 048
     Dates: start: 20050504
  8. CRESTOR [Concomitant]
     Active Substance: ROSUVASTATIN CALCIUM
     Indication: HYPERCHOLESTEROLAEMIA
     Dosage: 10 MG, QD
     Route: 048
     Dates: start: 20040519
  9. OMEGA 3-6-9 [Concomitant]
     Active Substance: FISH OIL
     Indication: HYPERCHOLESTEROLAEMIA
     Dosage: 1 TABLET, QD
     Route: 048
     Dates: start: 20140429
  10. AMITRIPTYLINE [Concomitant]
     Active Substance: AMITRIPTYLINE
     Indication: DEPRESSION
     Dosage: 10 MG, QD
     Route: 048
     Dates: start: 20150609
  11. LOVAZA [Concomitant]
     Active Substance: OMEGA-3-ACID ETHYL ESTERS
     Indication: HYPERCHOLESTEROLAEMIA
     Dosage: 1 G, BID
     Route: 048
     Dates: start: 20090529
  12. VITAMIN E [Concomitant]
     Active Substance: .ALPHA.-TOCOPHEROL
     Indication: HYPERCHOLESTEROLAEMIA
     Dosage: 1 TABLET, QD
     Route: 048
     Dates: start: 20140811
  13. JUXTAPID [Suspect]
     Active Substance: LOMITAPIDE MESYLATE
     Dosage: 10 MG, QD
     Route: 048
     Dates: start: 20160420
  14. CYMBALTA [Concomitant]
     Active Substance: DULOXETINE HYDROCHLORIDE
     Indication: COMPLEX REGIONAL PAIN SYNDROME
     Dosage: 60 MG, QD
     Route: 048
     Dates: start: 20131009
  15. TAMSULOSIN [Concomitant]
     Active Substance: TAMSULOSIN
     Indication: BLADDER DISORDER
     Dosage: 0.4 MG, QD
     Route: 048
     Dates: start: 20111130
  16. JUXTAPID [Suspect]
     Active Substance: LOMITAPIDE MESYLATE
     Dosage: 5 MG, QD
     Route: 048
     Dates: start: 20160112, end: 20160304
  17. PIROXICAM. [Concomitant]
     Active Substance: PIROXICAM
     Indication: COMPLEX REGIONAL PAIN SYNDROME
     Dosage: 10 MG, QD
     Route: 048
     Dates: start: 20130723

REACTIONS (3)
  - Loss of consciousness [Recovered/Resolved]
  - Fall [Recovered/Resolved]
  - Inappropriate schedule of drug administration [Unknown]

NARRATIVE: CASE EVENT DATE: 20151228
